FAERS Safety Report 4929872-9 (Version None)
Quarter: 2006Q1

REPORT INFORMATION
  Report Type: 
  Country: None (occurrence: None)
  Receive Date: 20060224
  Receipt Date: 20060210
  Transmission Date: 20060701
  Serious: Yes (Hospitalization)
  Sender: FDA-Public Use
  Company Number: 2006RL000048

PATIENT
  Age: 62 Year
  Sex: Male
  Weight: 70.3075 kg

DRUGS (12)
  1. RYTHMOL [Suspect]
     Indication: ATRIAL FIBRILLATION
     Dosage: SEE IMAGE
     Route: 048
     Dates: start: 20051104, end: 20060110
  2. RYTHMOL [Suspect]
     Indication: ATRIAL FIBRILLATION
     Dosage: SEE IMAGE
     Route: 048
     Dates: start: 20060111
  3. METOPROLOL SUCCINATE [Concomitant]
  4. ASPIRIN [Concomitant]
  5. WELLBUTRIN [Concomitant]
  6. EFFEXOR [Concomitant]
  7. FLOMAX [Concomitant]
  8. ARICEPT [Concomitant]
  9. FISH OIL [Concomitant]
  10. MULTIVITAMIN [Concomitant]
  11. VITAMIN E [Concomitant]
  12. CALCIUM GLUCONATE [Concomitant]

REACTIONS (3)
  - ATRIAL FIBRILLATION [None]
  - ATRIAL FLUTTER [None]
  - UNDERDOSE [None]
